FAERS Safety Report 6447572-3 (Version None)
Quarter: 2009Q4

REPORT INFORMATION
  Report Type: 
  Country: None (occurrence: None)
  Receive Date: 20091119
  Receipt Date: 20091027
  Transmission Date: 20100525
  Serious: Yes (Other)
  Sender: FDA-Public Use
  Company Number: PL-GENENTECH-294488

PATIENT
  Sex: Female
  Weight: 62 kg

DRUGS (4)
  1. MABTHERA [Suspect]
     Indication: RHEUMATOID ARTHRITIS
     Dosage: 1000 MG, X2
     Route: 042
     Dates: start: 20080704, end: 20080717
  2. MABTHERA [Suspect]
     Dosage: UNK
     Route: 042
     Dates: end: 20090722
  3. METHOTREXATE [Suspect]
     Indication: RHEUMATOID ARTHRITIS
     Dosage: 20 MG, 1/WEEK
     Route: 048
     Dates: start: 20000101, end: 20090101
  4. METYPRED [Concomitant]
     Dosage: UNK
     Route: 048
     Dates: start: 20000101

REACTIONS (1)
  - PREGNANCY [None]
